FAERS Safety Report 4732220-0 (Version None)
Quarter: 2005Q3

REPORT INFORMATION
  Report Type: 
  Country: None (occurrence: None)
  Receive Date: 20050802
  Receipt Date: 20050726
  Transmission Date: 20060218
  Serious: Yes (Other)
  Sender: FDA-Public Use
  Company Number: US-MERCK-0507USA04129

PATIENT
  Age: 52 Year
  Sex: Female

DRUGS (2)
  1. VIOXX [Suspect]
     Route: 048
     Dates: start: 20001101, end: 20041001
  2. VIOXX [Suspect]
     Route: 048
     Dates: start: 20001101, end: 20041001

REACTIONS (1)
  - CEREBROVASCULAR ACCIDENT [None]
